FAERS Safety Report 18584549 (Version 2)
Quarter: 2020Q4

REPORT INFORMATION
  Report Type: Report from Study
  Country: None (occurrence: IL)
  Receive Date: 20201207
  Receipt Date: 20201211
  Transmission Date: 20210114
  Serious: Yes (Death)
  Sender: FDA-Public Use
  Company Number: IL-ABBVIE-20K-082-3679731-00

PATIENT
  Sex: Female

DRUGS (2)
  1. DUODOPA [Suspect]
     Active Substance: CARBIDOPA\LEVODOPA
  2. DUODOPA [Suspect]
     Active Substance: CARBIDOPA\LEVODOPA
     Indication: PARKINSON^S DISEASE
     Dosage: MD 7.0(ML)  CD 5.1(ML/H) ED 2.0(ML) NIGHT CD 2.0(ML/H)
     Route: 050
     Dates: start: 20171104

REACTIONS (1)
  - Death [Fatal]

NARRATIVE: CASE EVENT DATE: 2020
